FAERS Safety Report 7479029-5 (Version None)
Quarter: 2011Q2

REPORT INFORMATION
  Report Type: 
  Country: None (occurrence: None)
  Receive Date: 20110513
  Receipt Date: 20110504
  Transmission Date: 20111010
  Serious: Yes (Hospitalization)
  Sender: FDA-Public Use
  Company Number: PHHY2011IT39697

PATIENT
  Age: 73 Year
  Sex: Male

DRUGS (8)
  1. LAMIVUDINE [Suspect]
     Indication: VIRAEMIA
     Dosage: 300 MG, QD
     Dates: start: 20070717, end: 20090901
  2. ADEFOVIR DIPIVOXIL KIT [Suspect]
     Dosage: 10 MG, QD
     Dates: start: 20070808
  3. PREDNISOLONE [Suspect]
     Dosage: 50 MG, QD
     Dates: start: 20070808
  4. CYTARABINE [Suspect]
     Indication: ACUTE MYELOID LEUKAEMIA
     Dosage: UNK UKN, UNK
     Dates: start: 20060801, end: 20070101
  5. NOVANTRONE [Suspect]
     Indication: ACUTE MYELOID LEUKAEMIA
     Dosage: UNK UKN, UNK
     Dates: start: 20060801, end: 20070101
  6. FLUDARABINE PHOSPHATE [Suspect]
     Indication: ACUTE MYELOID LEUKAEMIA
     Dosage: UNK UKN, UNK
     Dates: start: 20060801, end: 20070101
  7. PREDNISOLONE [Suspect]
     Dosage: 30 MG, QD
  8. LAMIVUDINE [Suspect]
     Dosage: 100 MG, QD

REACTIONS (6)
  - HEPATITIS B [None]
  - VIRAEMIA [None]
  - VIRAL HEPATITIS CARRIER [None]
  - LIVER INJURY [None]
  - JAUNDICE [None]
  - LEUKAEMIA [None]
